FAERS Safety Report 6973357-5 (Version None)
Quarter: 2010Q3

REPORT INFORMATION
  Report Type: 
  Country: None (occurrence: None)
  Receive Date: 20100909
  Receipt Date: 20100907
  Transmission Date: 20110219
  Serious: Yes (Life-Threatening, Other)
  Sender: FDA-Public Use
  Company Number: IN-ROXANE LABORATORIES, INC.-2010-RO-01189RO

PATIENT
  Age: 5 Year
  Sex: Male

DRUGS (8)
  1. TOPIRAMATE [Suspect]
     Indication: CONVULSION
  2. LEVETIRACETAM [Suspect]
     Indication: CONVULSION
  3. LAMOTRIGINE [Suspect]
     Indication: CONVULSION
  4. VALPROATE SODIUM [Suspect]
     Indication: CONVULSION
  5. CARBAMAZEPINE [Suspect]
     Indication: CONVULSION
  6. PHENOBARBITAL TAB [Suspect]
     Indication: CONVULSION
  7. CLONAZEPAM [Suspect]
     Indication: CONVULSION
     Dosage: 1 MG
  8. ZONISAMIDE [Suspect]
     Indication: CONVULSION

REACTIONS (2)
  - DRUG INEFFECTIVE [None]
  - HYPERAMMONAEMIC ENCEPHALOPATHY [None]
